FAERS Safety Report 6823243-6 (Version None)
Quarter: 2010Q3

REPORT INFORMATION
  Report Type: 
  Country: None (occurrence: None)
  Receive Date: 20100708
  Receipt Date: 20100628
  Transmission Date: 20110219
  Serious: Yes (Hospitalization)
  Sender: FDA-Public Use
  Company Number: IE-ABBOTT-10P-229-0654679-00

PATIENT
  Age: 19 Year
  Sex: Female
  Weight: 80 kg

DRUGS (4)
  1. HUMIRA [Suspect]
     Indication: CROHN'S DISEASE
     Dosage: DOSE NOT REPORTED
  2. HUMIRA [Suspect]
     Indication: VULVAL DISORDER
  3. IMURAN [Suspect]
     Indication: CROHN'S DISEASE
     Dates: end: 20100401
  4. AZATHIOPRINE [Concomitant]
     Indication: PRODUCT USED FOR UNKNOWN INDICATION

REACTIONS (2)
  - NEUTROPENIA [None]
  - PHARYNGITIS STREPTOCOCCAL [None]
